FAERS Safety Report 7472933-3 (Version None)
Quarter: 2011Q2

REPORT INFORMATION
  Report Type: 
  Country: None (occurrence: None)
  Receive Date: 20110503
  Receipt Date: 20110401
  Transmission Date: 20111010
  Serious: Yes (Other)
  Sender: FDA-Public Use
  Company Number: 019362

PATIENT
  Sex: Female
  Weight: 56.7 kg

DRUGS (13)
  1. IMURAN [Concomitant]
  2. LAMICTAL [Concomitant]
  3. NEURONTIN [Concomitant]
  4. VICODIN [Concomitant]
  5. AMITRIPTYLINE HCL [Concomitant]
  6. DEXLANSOPRAZOLE [Concomitant]
  7. FLONASE [Concomitant]
  8. CIMZIA [Suspect]
     Indication: CROHN'S DISEASE
     Dosage: (400 MG 1X/MONTH SUBCUTANEOUS), (200 MG 1X/2 WEEKS SUBCUTANEOUS)
     Route: 058
     Dates: start: 20100505
  9. CIMZIA [Suspect]
     Indication: CROHN'S DISEASE
     Dosage: (400 MG 1X/MONTH SUBCUTANEOUS), (200 MG 1X/2 WEEKS SUBCUTANEOUS)
     Route: 058
     Dates: start: 20101001, end: 20110204
  10. ZYRTEC [Concomitant]
  11. GABAPENTIN [Concomitant]
  12. ENTOCORT EC [Concomitant]
  13. RELPAX [Concomitant]

REACTIONS (4)
  - MALAISE [None]
  - ABDOMINAL PAIN [None]
  - INTESTINAL RESECTION [None]
  - ASTHENIA [None]
